FAERS Safety Report 24831124 (Version 1)
Quarter: 2025Q1

REPORT INFORMATION
  Report Type: Spontaneous
  Country: TR (occurrence: TR)
  Receive Date: 20250110
  Receipt Date: 20250110
  Transmission Date: 20250409
  Serious: Yes (Hospitalization)
  Sender: AMGEN
  Company Number: TR-AMGEN-TURSP2025001626

PATIENT
  Age: 72 Year
  Sex: Male
  Weight: 97.5 kg

DRUGS (1)
  1. LUMAKRAS [Suspect]
     Active Substance: SOTORASIB
     Indication: Lung cancer metastatic
     Route: 048
     Dates: start: 20241119

REACTIONS (2)
  - Cerebral infarction [Not Recovered/Not Resolved]
  - Cerebellar infarction [Not Recovered/Not Resolved]
